FAERS Safety Report 17993755 (Version 1)
Quarter: 2020Q3

REPORT INFORMATION
  Report Type: Spontaneous
  Country: PL (occurrence: PL)
  Receive Date: 20200708
  Receipt Date: 20200708
  Transmission Date: 20201103
  Serious: Yes (Other)
  Sender: FDA-Public Use
  Company Number: NVSC2020PL186352

PATIENT
  Age: 75 Year
  Sex: Female
  Weight: 76 kg

DRUGS (1)
  1. AMOKSIKLAV [Suspect]
     Active Substance: AMOXICILLIN\CLAVULANATE POTASSIUM
     Indication: CARDIAC FAILURE
     Dosage: 1.2 G, Q8H
     Route: 042
     Dates: start: 20170712, end: 20170713

REACTIONS (5)
  - Lividity [Recovered/Resolved]
  - Tremor [Recovered/Resolved]
  - Blood pressure increased [Recovered/Resolved]
  - Anxiety [Recovered/Resolved]
  - Illogical thinking [Recovered/Resolved]

NARRATIVE: CASE EVENT DATE: 20170713
